FAERS Safety Report 19598999 (Version 5)
Quarter: 2021Q3

REPORT INFORMATION
  Report Type: Report from Study
  Country: None (occurrence: CA)
  Receive Date: 20210722
  Receipt Date: 20210930
  Transmission Date: 20211014
  Serious: Yes (Life-Threatening, Hospitalization)
  Sender: FDA-Public Use
  Company Number: CA-ABBVIE-21P-028-3933418-00

PATIENT
  Age: 26 Year
  Sex: Male
  Weight: 66 kg

DRUGS (6)
  1. TYLENOL EXTRA STRENGTH [Concomitant]
     Active Substance: ACETAMINOPHEN
     Indication: HEADACHE
     Route: 048
     Dates: start: 2017
  2. UPADACITINIB [Suspect]
     Active Substance: UPADACITINIB
     Indication: COLITIS ULCERATIVE
     Route: 048
     Dates: start: 20191205, end: 20210601
  3. TUMS [Concomitant]
     Active Substance: CALCIUM CARBONATE
     Indication: GASTROOESOPHAGEAL REFLUX DISEASE
     Route: 048
     Dates: start: 20181018
  4. TUMERIC [Concomitant]
     Active Substance: HERBALS\TURMERIC
     Indication: NUTRITIONAL SUPPLEMENTATION
     Dosage: 1 TEA BAG
     Route: 048
     Dates: start: 2019
  5. UPADACITINIB [Suspect]
     Active Substance: UPADACITINIB
     Route: 048
     Dates: start: 20210610, end: 20210819
  6. TRAMADOL. [Concomitant]
     Active Substance: TRAMADOL
     Indication: COLITIS ULCERATIVE
     Route: 048
     Dates: start: 20181009

REACTIONS (4)
  - Pericardial effusion [Not Recovered/Not Resolved]
  - Pleural effusion [Not Recovered/Not Resolved]
  - Neoplasm malignant [Not Recovered/Not Resolved]
  - Pericarditis [Not Recovered/Not Resolved]

NARRATIVE: CASE EVENT DATE: 20210601
